FAERS Safety Report 13600876 (Version 3)
Quarter: 2018Q2

REPORT INFORMATION
  Report Type: Spontaneous
  Country: TR (occurrence: TR)
  Receive Date: 20170601
  Receipt Date: 20180618
  Transmission Date: 20180711
  Serious: Yes (Other)
  Sender: FDA-Public Use
  Company Number: TR-GLENMARK PHARMACEUTICALS-2017GMK027683

PATIENT
  Age: 68 Year
  Sex: Male

DRUGS (1)
  1. DICLOFENAC SODIUM. [Suspect]
     Active Substance: DICLOFENAC SODIUM
     Indication: BACK PAIN
     Dosage: UNK, (I.M INJECTION INTO HIS RIGHT BUTTOCK)
     Route: 030

REACTIONS (1)
  - Embolia cutis medicamentosa [Recovered/Resolved with Sequelae]
